FAERS Safety Report 6672717-X (Version None)
Quarter: 2010Q2

REPORT INFORMATION
  Report Type: 
  Country: None (occurrence: None)
  Receive Date: 20100408
  Receipt Date: 20100330
  Transmission Date: 20101027
  Serious: Yes (Hospitalization)
  Sender: FDA-Public Use
  Company Number: FR-ROCHE-694751

PATIENT
  Sex: Male

DRUGS (6)
  1. VALIUM [Suspect]
     Indication: PSYCHIATRIC DECOMPENSATION
     Route: 030
     Dates: start: 20081230, end: 20081230
  2. LOXAPAC [Suspect]
     Indication: PSYCHIATRIC DECOMPENSATION
     Dosage: FORM: INJECTIONS
     Route: 030
     Dates: start: 20081229, end: 20090102
  3. SOLIAN [Suspect]
     Indication: PSYCHIATRIC DECOMPENSATION
     Dosage: FORM: INJECTIONS
     Route: 030
     Dates: start: 20081230, end: 20081230
  4. HALDOL [Suspect]
     Indication: PSYCHIATRIC DECOMPENSATION
     Dosage: DOSE: 5 MG/ML. STRENGTH: 5 MG/ML
     Route: 030
     Dates: start: 20090101, end: 20090101
  5. NOZINAN [Suspect]
     Indication: PSYCHIATRIC DECOMPENSATION
     Dosage: DOSE: 25 MG/ML. STRENGTH: 25 MG/ML
     Route: 030
     Dates: start: 20090101, end: 20090101
  6. LOVENOX [Concomitant]
     Route: 058
     Dates: start: 20090102, end: 20090104

REACTIONS (4)
  - BLOOD CREATINE PHOSPHOKINASE INCREASED [None]
  - C-REACTIVE PROTEIN INCREASED [None]
  - HYPERTHERMIA [None]
  - TACHYCARDIA [None]
